FAERS Safety Report 12711653 (Version 1)
Quarter: 2016Q3

REPORT INFORMATION
  Report Type: Spontaneous
  Country: US (occurrence: US)
  Receive Date: 20160902
  Receipt Date: 20160902
  Transmission Date: 20161109
  Serious: No
  Sender: FDA-Public Use
  Company Number: US-BAYER-2016-171573

PATIENT
  Age: 64 Year
  Sex: Male
  Weight: 97.51 kg

DRUGS (2)
  1. MIRALAX [Suspect]
     Active Substance: POLYETHYLENE GLYCOL 3350
     Indication: GASTROINTESTINAL DISORDER
     Dosage: LESS THAN A CAPFUL, ONCE; CONSUMER MIXED THE PRODUCT IN 8 OUNCES OF WATER
     Route: 048
     Dates: start: 201607, end: 201607
  2. ONE A DAY 50 PLUS [Concomitant]
     Dosage: UNK

REACTIONS (1)
  - Product use issue [None]
